FAERS Safety Report 8017965-1 (Version None)
Quarter: 2012Q1

REPORT INFORMATION
  Report Type: 
  Country: None (occurrence: None)
  Receive Date: 20120103
  Receipt Date: 20111229
  Transmission Date: 20120608
  Serious: No
  Sender: FDA-Public Use
  Company Number: US-JNJFOC-20120100043

PATIENT
  Sex: Female
  Weight: 74.84 kg

DRUGS (7)
  1. FENTANYL-100 [Suspect]
     Indication: MIGRAINE
     Route: 062
  2. FENTANYL-100 [Suspect]
     Indication: HEADACHE
     Route: 062
  3. DURAGESIC-100 [Suspect]
     Indication: MIGRAINE
     Route: 062
  4. DURAGESIC-100 [Suspect]
     Indication: HEADACHE
     Route: 062
  5. PERCOCET [Concomitant]
     Indication: MIGRAINE
     Route: 048
  6. PERCOCET [Concomitant]
     Indication: HEADACHE
     Route: 048
  7. FENTANYL CITRATE [Suspect]
     Indication: PRODUCT USED FOR UNKNOWN INDICATION
     Route: 062
     Dates: start: 20080101

REACTIONS (7)
  - WRONG TECHNIQUE IN DRUG USAGE PROCESS [None]
  - PRURITUS [None]
  - RASH [None]
  - DRUG INEFFECTIVE [None]
  - DRUG ADMINISTERED AT INAPPROPRIATE SITE [None]
  - APPLICATION SITE EROSION [None]
  - PRODUCT QUALITY ISSUE [None]
